FAERS Safety Report 4598618-9 (Version None)
Quarter: 2005Q1

REPORT INFORMATION
  Report Type: 
  Country: None (occurrence: None)
  Receive Date: 20050207
  Receipt Date: 20040727
  Transmission Date: 20050727
  Serious: Yes (Other)
  Sender: FDA-Public Use
  Company Number: PROG00204002517

PATIENT
  Age: 57 Year
  Sex: Female
  Weight: 81 kg

DRUGS (9)
  1. PROMETRIUM [Suspect]
     Indication: HORMONE REPLACEMENT THERAPY
     Dosage: DAILY
     Dates: start: 20000802, end: 20040301
  2. ESTRADIOL [Suspect]
     Indication: HORMONE REPLACEMENT THERAPY
     Dosage: DAILY ORAL
     Route: 048
     Dates: start: 20020223, end: 20030517
  3. ESTROPIPATE [Suspect]
     Indication: HORMONE REPLACEMENT THERAPY
     Dosage: DAILY
     Dates: start: 20000118, end: 20040301
  4. AYGESTIN [Suspect]
     Indication: HORMONE REPLACEMENT THERAPY
     Dosage: DAILY ORAL
     Route: 048
     Dates: start: 20000118, end: 20000414
  5. PREMPRO [Suspect]
     Indication: HORMONE REPLACEMENT THERAPY
     Dosage: DAILY ORAL
     Route: 048
     Dates: start: 19981111, end: 20000118
  6. COMBIPATCH [Suspect]
     Indication: HORMONE REPLACEMENT THERAPY
     Dosage: DAILY TRANSCUTANEOUS
     Dates: start: 20000414, end: 20000802
  7. ESTRACE [Suspect]
     Indication: HORMONE REPLACEMENT THERAPY
     Dosage: DAILY VAGINAL
     Route: 067
  8. OGEN [Suspect]
     Indication: HORMONE REPLACEMENT THERAPY
     Dosage: DAILY VAGINAL
     Route: 067
  9. PREMARIN [Suspect]
     Indication: HORMONE REPLACEMENT THERAPY
     Dosage: DAILY VAGINAL
     Route: 067

REACTIONS (1)
  - BREAST CANCER [None]
